FAERS Safety Report 5956836-9 (Version None)
Quarter: 2008Q4

REPORT INFORMATION
  Report Type: 
  Country: None (occurrence: None)
  Receive Date: 20081118
  Receipt Date: 20081112
  Transmission Date: 20090506
  Serious: Yes (Disabling, Other)
  Sender: FDA-Public Use
  Company Number: DE-ASTRAZENECA-2006PK00107

PATIENT
  Age: 16710 Day
  Sex: Female

DRUGS (2)
  1. TAMOXIFEN [Suspect]
     Indication: BREAST CANCER FEMALE
     Route: 048
     Dates: start: 20040621, end: 20051024
  2. ZOLADEX [Concomitant]
     Indication: BREAST CANCER FEMALE
     Route: 058
     Dates: start: 20040621

REACTIONS (1)
  - LENTICULAR OPACITIES [None]
